FAERS Safety Report 15550678 (Version 3)
Quarter: 2018Q4

REPORT INFORMATION
  Report Type: Spontaneous
  Country: CZ (occurrence: CZ)
  Receive Date: 20181025
  Receipt Date: 20181113
  Transmission Date: 20190205
  Serious: Yes (Death, Other)
  Sender: FDA-Public Use
  Company Number: CZ-TEVA-2018-CZ-967087

PATIENT
  Age: 21 Year
  Sex: Female

DRUGS (3)
  1. CISPLATIN. [Suspect]
     Active Substance: CISPLATIN
     Indication: LUNG NEOPLASM MALIGNANT
     Dosage: 4 CYCLES
     Route: 042
     Dates: start: 201603, end: 201606
  2. VINORELBINE [Suspect]
     Active Substance: VINORELBINE\VINORELBINE TARTRATE
     Route: 048
     Dates: start: 201608, end: 201609
  3. VINORELBINE [Suspect]
     Active Substance: VINORELBINE\VINORELBINE TARTRATE
     Indication: LUNG NEOPLASM MALIGNANT
     Route: 048
     Dates: start: 201603, end: 201606

REACTIONS (2)
  - Death [Fatal]
  - Neutropenia [Unknown]

NARRATIVE: CASE EVENT DATE: 2016
